FAERS Safety Report 15307537 (Version 1)
Quarter: 2018Q3

REPORT INFORMATION
  Report Type: Other
  Country: BE (occurrence: BE)
  Receive Date: 20180822
  Receipt Date: 20180822
  Transmission Date: 20181010
  Serious: Yes (Other)
  Sender: FDA-Public Use
  Company Number: BE-DENTSPLY-2018SCDP000362

PATIENT
  Sex: Female

DRUGS (1)
  1. XYLOCAINE [Suspect]
     Active Substance: LIDOCAINE HYDROCHLORIDE
     Indication: LUMBAR PUNCTURE
     Dosage: 1 DF, TOTAL, XYLOCA?NE BIJ LUMBAAL PUNCTIE
     Route: 050

REACTIONS (2)
  - Nervous system disorder [Unknown]
  - Paralysis [Unknown]
